FAERS Safety Report 15363372 (Version 4)
Quarter: 2019Q2

REPORT INFORMATION
  Report Type: Report from Study
  Country: US (occurrence: US)
  Receive Date: 20180907
  Receipt Date: 20190517
  Transmission Date: 20190711
  Serious: Yes (Hospitalization)
  Sender: FDA-Public Use
  Company Number: US-ACTELION-A-US2018-177666

PATIENT
  Age: 49 Year
  Sex: Male
  Weight: 92.06 kg

DRUGS (10)
  1. WARFARIN [Concomitant]
     Active Substance: WARFARIN
  2. ALBUTEROL. [Concomitant]
     Active Substance: ALBUTEROL
  3. REMODULIN [Concomitant]
     Active Substance: TREPROSTINIL
     Dosage: 37 NG/KG, PER MIN
     Route: 042
  4. METFORMIN [Concomitant]
     Active Substance: METFORMIN HYDROCHLORIDE
     Indication: ESSENTIAL HYPERTENSION
  5. TADALAFIL. [Concomitant]
     Active Substance: TADALAFIL
     Dosage: UNK
     Dates: start: 201807
  6. AZATHIOPRINE. [Concomitant]
     Active Substance: AZATHIOPRINE
  7. PRAVASTATINE [Concomitant]
     Active Substance: PRAVASTATIN
  8. FUROSEMIDE. [Concomitant]
     Active Substance: FUROSEMIDE
  9. PREDNISONE. [Concomitant]
     Active Substance: PREDNISONE
  10. OPSUMIT [Suspect]
     Active Substance: MACITENTAN
     Indication: PULMONARY HYPERTENSION
     Dosage: 10 MG, QD
     Route: 048
     Dates: start: 20180709

REACTIONS (17)
  - Hypotension [Recovered/Resolved]
  - Hypovolaemia [Recovered/Resolved]
  - Catheter placement [Recovered/Resolved]
  - Aspartate aminotransferase increased [Recovered/Resolved]
  - Nausea [Unknown]
  - Pain in jaw [Recovered/Resolved]
  - Alanine aminotransferase increased [Recovered/Resolved]
  - Acute kidney injury [Recovered/Resolved]
  - Photophobia [Recovered/Resolved]
  - Oliguria [Unknown]
  - Pain [Recovered/Resolved]
  - Asthenia [Unknown]
  - Renal lesion excision [Unknown]
  - Vomiting [Unknown]
  - Renal impairment [Recovered/Resolved]
  - Diarrhoea [Unknown]
  - Fall [Unknown]

NARRATIVE: CASE EVENT DATE: 20180808
